FAERS Safety Report 17233526 (Version 2)
Quarter: 2020Q1

REPORT INFORMATION
  Report Type: Report from Study
  Country: US (occurrence: US)
  Receive Date: 20200105
  Receipt Date: 20200122
  Transmission Date: 20200409
  Serious: Yes (Death)
  Sender: FDA-Public Use
  Company Number: US-TAIHO ONCOLOGY  INC-EU-2019-04347

PATIENT
  Sex: Female

DRUGS (5)
  1. LONSURF [Suspect]
     Active Substance: TIPIRACIL HYDROCHLORIDE\TRIFLURIDINE
     Indication: COLON CANCER
     Dosage: CURRENT CYCLE UNKNOWN.
     Route: 048
     Dates: start: 20190826
  2. MEGESTROL AC [Concomitant]
     Dosage: AC
  3. LONSURF [Suspect]
     Active Substance: TIPIRACIL HYDROCHLORIDE\TRIFLURIDINE
     Dosage: CYCLE 1
     Route: 048
     Dates: start: 20190902, end: 20191125
  4. ELIQUIS [Concomitant]
     Active Substance: APIXABAN
     Dosage: NI
  5. KLOR-CON M10 [Concomitant]
     Active Substance: POTASSIUM CHLORIDE
     Dosage: NI

REACTIONS (1)
  - Colon cancer [Fatal]
